FAERS Safety Report 9332524 (Version 1)
Quarter: 2013Q2

REPORT INFORMATION
  Report Type: Spontaneous
  Country: FR (occurrence: None)
  Receive Date: 20130603
  Receipt Date: 20130603
  Transmission Date: 20140414
  Serious: Yes (Hospitalization)
  Sender: FDA-Public Use
  Company Number: 1695145

PATIENT
  Age: 61 Year
  Sex: Female

DRUGS (4)
  1. CARBOPLATIN [Suspect]
     Indication: OVARIAN CANCER
     Dosage: 11:45 -
     Dates: start: 20121029
  2. ZOPHREN [Concomitant]
  3. SOLUMEDROL [Concomitant]
  4. POLARAMINE [Concomitant]

REACTIONS (4)
  - Dysphonia [None]
  - Erythema [None]
  - Malaise [None]
  - Chest discomfort [None]
